FAERS Safety Report 12205054 (Version 11)
Quarter: 2019Q2

REPORT INFORMATION
  Report Type: Report from Study
  Country: CO (occurrence: CO)
  Receive Date: 20160323
  Receipt Date: 20190404
  Transmission Date: 20190711
  Serious: Yes (Hospitalization)
  Sender: FDA-Public Use
  Company Number: PHHY2016CO036674

PATIENT
  Age: 60 Year
  Sex: Male
  Weight: 75 kg

DRUGS (4)
  1. TASIGNA [Suspect]
     Active Substance: NILOTINIB
     Dosage: 400 MG, QD
     Route: 048
  2. TASIGNA [Suspect]
     Active Substance: NILOTINIB
     Indication: CHRONIC MYELOID LEUKAEMIA
     Dosage: 2 DF (200 MG), Q12H
     Route: 048
     Dates: start: 20120108, end: 20170314
  3. BOSUTINIB [Suspect]
     Active Substance: BOSUTINIB
     Indication: PRODUCT USED FOR UNKNOWN INDICATION
     Route: 065
  4. ALLOPURINOL. [Concomitant]
     Active Substance: ALLOPURINOL
     Indication: DYSPEPSIA
     Dosage: 20 MG, UNK
     Route: 048

REACTIONS (19)
  - Laziness [Recovering/Resolving]
  - Haematoma [Unknown]
  - Asthenia [Unknown]
  - Fall [Unknown]
  - Malaise [Unknown]
  - Headache [Not Recovered/Not Resolved]
  - Rash [Unknown]
  - Somnolence [Not Recovered/Not Resolved]
  - Mood altered [Unknown]
  - Pain [Unknown]
  - Splenitis [Not Recovered/Not Resolved]
  - Spinal cord disorder [Unknown]
  - Abdominal pain [Unknown]
  - Inappropriate schedule of product administration [Unknown]
  - Platelet count increased [Recovering/Resolving]
  - Contusion [Unknown]
  - Hypersensitivity [Unknown]
  - Drug ineffective [Unknown]
  - Road traffic accident [Unknown]

NARRATIVE: CASE EVENT DATE: 20160510
